FAERS Safety Report 8544784-X (Version None)
Quarter: 2012Q3

REPORT INFORMATION
  Report Type: 
  Country: None (occurrence: None)
  Receive Date: 20120727
  Receipt Date: 20120713
  Transmission Date: 20120928
  Serious: Yes (Other)
  Sender: FDA-Public Use
  Company Number: CA-JNJFOC-20111210533

PATIENT
  Sex: Female
  Weight: 54.66 kg

DRUGS (3)
  1. ALESSE [Concomitant]
     Indication: CONTRACEPTION
     Route: 048
     Dates: start: 20110501, end: 20111217
  2. PHENYLEPHRINE HYDROCHLORIDE [Suspect]
     Indication: INFLUENZA LIKE ILLNESS
     Dosage: 45 MG/ CAPSULE
     Route: 048
     Dates: start: 20111215, end: 20111215
  3. PHENYLEPHRINE HYDROCHLORIDE [Suspect]
     Indication: NASOPHARYNGITIS
     Dosage: 45 MG/ CAPSULE
     Route: 048
     Dates: start: 20111215, end: 20111215

REACTIONS (3)
  - PLACENTAL DISORDER [None]
  - SMALL FOR DATES BABY [None]
  - MATERNAL EXPOSURE DURING PREGNANCY [None]
